FAERS Safety Report 11318431 (Version 44)
Quarter: 2017Q3

REPORT INFORMATION
  Report Type: Report from Study
  Country: CA (occurrence: CA)
  Receive Date: 20150728
  Receipt Date: 20170723
  Transmission Date: 20171127
  Serious: Yes (Hospitalization, Other)
  Sender: FDA-Public Use
  Company Number: CA-ROCHE-1584433

PATIENT
  Age: 71 Year
  Sex: Female
  Weight: 44 kg

DRUGS (12)
  1. PREDNISONE. [Concomitant]
     Active Substance: PREDNISONE
     Route: 065
  2. CALCIUM CARBONATE. [Concomitant]
     Active Substance: CALCIUM CARBONATE
  3. FOLIC ACID. [Concomitant]
     Active Substance: FOLIC ACID
  4. ACTEMRA [Suspect]
     Active Substance: TOCILIZUMAB
     Indication: VASCULITIS
     Route: 042
     Dates: start: 20150625
  5. METFORMIN [Concomitant]
     Active Substance: METFORMIN HYDROCHLORIDE
     Route: 065
  6. METHOTREXATE. [Concomitant]
     Active Substance: METHOTREXATE
     Route: 048
  7. LEFLUNOMIDE. [Concomitant]
     Active Substance: LEFLUNOMIDE
  8. ACTEMRA [Suspect]
     Active Substance: TOCILIZUMAB
     Indication: TEMPORAL ARTERITIS
     Route: 042
     Dates: start: 20150526
  9. NEVANAC [Concomitant]
     Active Substance: NEPAFENAC
     Route: 061
  10. PREDNISOLONE. [Concomitant]
     Active Substance: PREDNISOLONE
     Route: 061
  11. MINOCYCLINE [Suspect]
     Active Substance: MINOCYCLINE\MINOCYCLINE HYDROCHLORIDE
     Indication: PRODUCT USED FOR UNKNOWN INDICATION
     Route: 048
     Dates: start: 201610, end: 201610
  12. MOXIFLOXACIN. [Concomitant]
     Active Substance: MOXIFLOXACIN
     Route: 061

REACTIONS (35)
  - Mass [Unknown]
  - Blood pressure increased [Not Recovered/Not Resolved]
  - Feeling cold [Unknown]
  - Vasodilatation [Not Recovered/Not Resolved]
  - Neck pain [Not Recovered/Not Resolved]
  - Blood pressure diastolic increased [Unknown]
  - Stress [Unknown]
  - Loose tooth [Not Recovered/Not Resolved]
  - Headache [Not Recovered/Not Resolved]
  - Renal neoplasm [Not Recovered/Not Resolved]
  - Renal cyst [Not Recovered/Not Resolved]
  - Nasal congestion [Recovered/Resolved]
  - Hypotension [Unknown]
  - Rash macular [Not Recovered/Not Resolved]
  - Musculoskeletal pain [Not Recovered/Not Resolved]
  - Blood urine present [Unknown]
  - Heart rate increased [Unknown]
  - Rhinitis [Unknown]
  - Palpitations [Recovering/Resolving]
  - Ill-defined disorder [Unknown]
  - Confusional state [Not Recovered/Not Resolved]
  - Blood pressure fluctuation [Unknown]
  - Vasculitis [Recovered/Resolved]
  - Asthenia [Recovering/Resolving]
  - Neuralgia [Unknown]
  - Contusion [Recovering/Resolving]
  - Nasopharyngitis [Recovered/Resolved]
  - Vein disorder [Unknown]
  - Temporal arteritis [Recovered/Resolved]
  - Asthenia [Not Recovered/Not Resolved]
  - Weight decreased [Not Recovered/Not Resolved]
  - Pneumonia [Not Recovered/Not Resolved]
  - Pemphigoid [Recovered/Resolved]
  - Hypotension [Unknown]
  - Herpes zoster [Not Recovered/Not Resolved]

NARRATIVE: CASE EVENT DATE: 20150526
